FAERS Safety Report 9326181 (Version 1)
Quarter: 2013Q2

REPORT INFORMATION
  Report Type: Spontaneous
  Country: US (occurrence: None)
  Receive Date: 20130603
  Receipt Date: 20130603
  Transmission Date: 20140414
  Serious: No
  Sender: FDA-Public Use
  Company Number: None

PATIENT
  Age: 66 Year
  Sex: Male
  Weight: 131.4 kg

DRUGS (1)
  1. CEFTAROLINE [Suspect]
     Indication: ARTHRITIS BACTERIAL
     Dates: start: 20130218, end: 20130311

REACTIONS (2)
  - Rash [None]
  - Eosinophilia [None]
